FAERS Safety Report 7607535-9 (Version None)
Quarter: 2011Q3

REPORT INFORMATION
  Report Type: 
  Country: None (occurrence: None)
  Receive Date: 20110713
  Receipt Date: 20090218
  Transmission Date: 20111222
  Serious: Yes (Other)
  Sender: FDA-Public Use
  Company Number: US-BAYER-200816408NA

PATIENT
  Age: 51 Year
  Sex: Female
  Weight: 64.091 kg

DRUGS (77)
  1. PROHANCE [Suspect]
     Indication: NUCLEAR MAGNETIC RESONANCE IMAGING
     Route: 042
  2. REGLAN [Concomitant]
  3. NEPHRO-VITE [VITAMINS NOS] [Concomitant]
     Dosage: 1
     Route: 048
  4. EPOETIN NOS [Concomitant]
  5. PLENDIL [Concomitant]
     Route: 048
  6. SENSIPAR [Concomitant]
     Route: 048
  7. ACETAMINOPHEN [Concomitant]
     Route: 048
     Dates: start: 20070620, end: 20070620
  8. ACETAMINOPHEN [Concomitant]
     Route: 048
     Dates: start: 20070622, end: 20070622
  9. ACETAMINOPHEN [Concomitant]
     Route: 048
     Dates: start: 20070725, end: 20070725
  10. CALCITRIOL [Concomitant]
     Route: 048
  11. PEG 3350 AND ELECTROLYTES [Concomitant]
     Route: 048
  12. OMNISCAN [Suspect]
     Indication: NUCLEAR MAGNETIC RESONANCE IMAGING
  13. OMNISCAN [Suspect]
     Indication: FISTULOGRAM
  14. MULTIHANCE [Suspect]
     Indication: NUCLEAR MAGNETIC RESONANCE IMAGING
     Route: 042
  15. MULTIHANCE [Suspect]
     Indication: FISTULOGRAM
  16. MULTIHANCE [Suspect]
     Indication: VENOGRAM
  17. PROHANCE [Suspect]
     Indication: FISTULOGRAM
  18. PROTONIX [Concomitant]
     Dosage: PER MR 24-APR-2007
     Route: 048
  19. AMIODARONE HCL [Concomitant]
     Dosage: PER MR 24-APR-2007 AND 15-MAY-2007
     Route: 048
  20. RENAGEL [Concomitant]
     Dosage: MR 29-JUL-2007: SIX TABLETS WITH MEALS, THREE TABLETS WITH SNACKS
  21. ALLOPURINOL [Concomitant]
     Dosage: MR 03-JUN-1996: QAM
  22. UREACIN [Concomitant]
     Route: 061
  23. OPTIMARK [Suspect]
     Indication: FISTULOGRAM
  24. COUMADIN [Concomitant]
     Dosage: 1 TABLET SUNDAY AND THURSDAY; MR 29-JUL-2007 1 TABLET SUNDAY AND TUESDAY
  25. TUMS [CALCIUM CARBONATE] [Concomitant]
     Dosage: 2 TABLETS DAILY
     Route: 048
  26. PROCARDIA XL [Concomitant]
     Route: 048
  27. IMMUNE GLOBULIN NOS [Concomitant]
     Route: 042
     Dates: start: 20070613, end: 20070613
  28. BENADRYL [Concomitant]
     Route: 048
     Dates: start: 20070613, end: 20070613
  29. BENADRYL [Concomitant]
     Route: 048
     Dates: start: 20070615, end: 20070615
  30. METOCLOPRAMIDE [Concomitant]
     Route: 048
  31. OMNISCAN [Suspect]
     Indication: VENOGRAM
     Route: 042
  32. OPTIMARK [Suspect]
     Indication: NUCLEAR MAGNETIC RESONANCE IMAGING
     Route: 042
  33. VICODIN [Concomitant]
  34. PHOSLO [Concomitant]
     Dosage: 1 TABLET TID W/MEALS
  35. NIFEDIPINE [Concomitant]
  36. VITAMIN B12 [Concomitant]
     Dosage: 1,000 MCG/ML
  37. CYCLOSPORINE [Concomitant]
     Dosage: 100 MG Q AM AND 50 MG Q PM
  38. IMMUNE GLOBULIN NOS [Concomitant]
     Route: 042
     Dates: start: 20070620, end: 20070620
  39. IMMUNE GLOBULIN NOS [Concomitant]
     Route: 042
     Dates: start: 20070622, end: 20070622
  40. ACETAMINOPHEN [Concomitant]
  41. OMEPRAZOLE [Concomitant]
     Route: 048
  42. CARDIZEM [Concomitant]
  43. MAGNEVIST [Suspect]
     Indication: NUCLEAR MAGNETIC RESONANCE IMAGING
     Route: 042
     Dates: start: 20060926, end: 20060926
  44. PROHANCE [Suspect]
     Indication: VENOGRAM
  45. PRAVACHOL [Concomitant]
     Route: 048
  46. PRILOSEC [Concomitant]
     Route: 048
  47. IMMUNE GLOBULIN NOS [Concomitant]
     Route: 042
     Dates: start: 20070725, end: 20070725
  48. ACETAMINOPHEN [Concomitant]
     Route: 048
     Dates: start: 20070615, end: 20070615
  49. LOPERAMIDE [Concomitant]
     Route: 048
  50. GADOLINIUM IN UNSPECIFIED DRUG [Suspect]
     Indication: FISTULOGRAM
     Dosage: UNK
     Dates: start: 20010111, end: 20010111
  51. CORTICOSTEROIDS [Concomitant]
  52. PROTONIX [Concomitant]
  53. TUMS [CALCIUM CARBONATE] [Concomitant]
     Route: 048
  54. RENAGEL [Concomitant]
     Dosage: 4-5 CAPSULES W/MEALS AND 3-4 CAPSULES W/SNACKS
     Route: 048
  55. ALLOPURINOL [Concomitant]
     Route: 048
  56. ACETAMINOPHEN [Concomitant]
     Route: 048
     Dates: start: 20070613, end: 20070613
  57. BENADRYL [Concomitant]
     Route: 048
     Dates: start: 20070725, end: 20070725
  58. PRAVASTATIN [Concomitant]
     Route: 048
  59. MAGNEVIST [Suspect]
     Indication: VENOGRAM
  60. OPTIMARK [Suspect]
     Indication: VENOGRAM
  61. LEVOTHROID [Concomitant]
     Dosage: PER MR 24-APR-2007; 0.025 MG, TWO DAILY
  62. COUMADIN [Concomitant]
     Route: 048
     Dates: end: 20070101
  63. EPOGEN [Concomitant]
  64. IMMUNE GLOBULIN NOS [Concomitant]
     Route: 042
     Dates: start: 20070615, end: 20070615
  65. BENADRYL [Concomitant]
     Route: 048
     Dates: start: 20070620, end: 20070620
  66. BENADRYL [Concomitant]
     Route: 048
     Dates: start: 20070622, end: 20070622
  67. FOSRENOL [Concomitant]
     Dosage: CHEW
     Route: 048
  68. MAGNEVIST [Suspect]
     Indication: FISTULOGRAM
     Dates: start: 20061128, end: 20061128
  69. PREDNISONE [Concomitant]
     Dosage: MR OF 29-JUL-2007 TAPER OF PREDNISONE 40MG DAILY X 2 DAYS, THEN 20 MG DAILY X 2 DAYS, THEN OFF
     Dates: start: 20070729, end: 20070801
  70. LEVOTHROID [Concomitant]
     Dosage: AS OF 27-MAR-2007
     Route: 048
  71. ATENOLOL [Concomitant]
     Route: 048
  72. ATENOLOL [Concomitant]
     Route: 048
  73. COUMADIN [Concomitant]
     Dosage: MON, TUES, WED, FRI, SAT 1/2 TABLET DAILY; MR 29-JUL-2007 1/2 TAB (M/W/THURS/FRI/SAT)
  74. SENSIPAR [Concomitant]
     Dates: start: 20060101, end: 20070301
  75. IMODIUM [Concomitant]
  76. NITROGLYCERIN [Concomitant]
     Route: 060
  77. TRAMADOL HCL [Concomitant]

REACTIONS (23)
  - ERYTHEMA [None]
  - PAIN [None]
  - SKIN TIGHTNESS [None]
  - SCLERODACTYLIA [None]
  - DRY SKIN [None]
  - NEPHROGENIC SYSTEMIC FIBROSIS [None]
  - SCAR [None]
  - PAIN IN EXTREMITY [None]
  - PERIPHERAL COLDNESS [None]
  - JOINT RANGE OF MOTION DECREASED [None]
  - SKIN EXFOLIATION [None]
  - DERMATITIS [None]
  - PRURITUS [None]
  - MOTOR DYSFUNCTION [None]
  - EMOTIONAL DISTRESS [None]
  - BURNING SENSATION [None]
  - SKIN FISSURES [None]
  - JOINT STIFFNESS [None]
  - SKIN INDURATION [None]
  - OEDEMA PERIPHERAL [None]
  - INJURY [None]
  - SKIN DISCOLOURATION [None]
  - ANXIETY [None]
